FAERS Safety Report 5727675-9 (Version None)
Quarter: 2008Q2

REPORT INFORMATION
  Report Type: 
  Country: None (occurrence: None)
  Receive Date: 20080505
  Receipt Date: 20080430
  Transmission Date: 20081010
  Serious: Yes (Hospitalization)
  Sender: FDA-Public Use
  Company Number: Z0000441A

PATIENT
  Age: 52 Year
  Sex: Male
  Weight: 75 kg

DRUGS (2)
  1. LAPATINIB [Suspect]
     Indication: NON-SMALL CELL LUNG CANCER
     Dosage: 1250MG PER DAY
     Route: 048
     Dates: start: 20080122
  2. PEMETREXED [Suspect]
     Indication: NON-SMALL CELL LUNG CANCER
     Dosage: 500MGM2 CYCLIC
     Route: 042
     Dates: start: 20080122

REACTIONS (1)
  - HEADACHE [None]
